FAERS Safety Report 18055166 (Version 1)
Quarter: 2020Q3

REPORT INFORMATION
  Report Type: Report from Study
  Country: None (occurrence: US)
  Receive Date: 20200722
  Receipt Date: 20200722
  Transmission Date: 20201103
  Serious: Yes (Hospitalization)
  Sender: FDA-Public Use
  Company Number: US-ABBVIE-20K-163-3491197-00

PATIENT
  Age: 72 Year
  Sex: Female

DRUGS (2)
  1. IMBRUVICA [Suspect]
     Active Substance: IBRUTINIB
     Indication: CHRONIC LYMPHOCYTIC LEUKAEMIA
     Route: 048
     Dates: start: 20190315
  2. EYE DROPS [Concomitant]
     Active Substance: UNSPECIFIED INGREDIENT
     Indication: GLAUCOMA

REACTIONS (12)
  - White blood cell count increased [Unknown]
  - Impaired healing [Not Recovered/Not Resolved]
  - Speech disorder [Not Recovered/Not Resolved]
  - Hypokinesia [Unknown]
  - Haematochezia [Unknown]
  - Hip fracture [Recovering/Resolving]
  - Wrong technique in product usage process [Unknown]
  - Blood count abnormal [Unknown]
  - Memory impairment [Not Recovered/Not Resolved]
  - Blood count abnormal [Unknown]
  - Fall [Recovering/Resolving]
  - Mastication disorder [Unknown]

NARRATIVE: CASE EVENT DATE: 2020
